FAERS Safety Report 4515005-X (Version None)
Quarter: 2004Q4

REPORT INFORMATION
  Report Type: 
  Country: None (occurrence: None)
  Receive Date: 20041129
  Receipt Date: 20041129
  Transmission Date: 20050328
  Serious: No
  Sender: FDA-Public Use
  Company Number: None

PATIENT
  Sex: Male
  Weight: 65 kg

DRUGS (1)
  1. METHYLPREDNISONE   1 GRAM VIAL [Suspect]
     Indication: RHEUMATOID ARTHRITIS
     Dosage: 1 GRAM  QD   INTRAVENOU
     Route: 042
     Dates: start: 20040720, end: 20040722

REACTIONS (1)
  - HYPERGLYCAEMIA [None]
